FAERS Safety Report 12648276 (Version 1)
Quarter: 2016Q3

REPORT INFORMATION
  Report Type: Spontaneous
  Country: GB (occurrence: GB)
  Receive Date: 20160812
  Receipt Date: 20160812
  Transmission Date: 20161109
  Serious: Yes (Hospitalization, Other)
  Sender: FDA-Public Use
  Company Number: GB-009507513-1608GBR006912

PATIENT
  Age: 69 Year
  Sex: Female

DRUGS (4)
  1. LOSARTAN POTASSIUM. [Suspect]
     Active Substance: LOSARTAN POTASSIUM
     Route: 048
  2. RAMIPRIL. [Suspect]
     Active Substance: RAMIPRIL
  3. ADIZEM [Suspect]
     Active Substance: DILTIAZEM HYDROCHLORIDE
  4. BENDROFLUMETHIAZIDE [Concomitant]
     Active Substance: BENDROFLUMETHIAZIDE
     Dosage: UNK
     Dates: end: 201607

REACTIONS (4)
  - Pneumonia [Unknown]
  - Syncope [Recovered/Resolved]
  - Hypokalaemia [Recovered/Resolved]
  - Aphonia [Recovered/Resolved]
